FAERS Safety Report 4956400-4 (Version None)
Quarter: 2006Q1

REPORT INFORMATION
  Report Type: 
  Country: None (occurrence: None)
  Receive Date: 20060328
  Receipt Date: 20060328
  Transmission Date: 20060701
  Serious: No
  Sender: FDA-Public Use
  Company Number: None

PATIENT
  Sex: Female
  Weight: 127.0072 kg

DRUGS (1)
  1. GAMUNEX [Suspect]
     Indication: MULTIPLE SCLEROSIS
     Dosage: IVIG 35 GM EVERY 3 WEEKS
     Dates: start: 20060327

REACTIONS (4)
  - CHEST PAIN [None]
  - DRUG EFFECT DECREASED [None]
  - DYSPNOEA [None]
  - INFUSION RELATED REACTION [None]
